FAERS Safety Report 14641254 (Version 1)
Quarter: 2018Q1

REPORT INFORMATION
  Report Type: Spontaneous
  Country: US (occurrence: US)
  Receive Date: 20180315
  Receipt Date: 20180315
  Transmission Date: 20180509
  Serious: Yes (Other)
  Sender: FDA-Public Use
  Company Number: US-CELLTRION INC.-2018US018518

PATIENT

DRUGS (2)
  1. INFLECTRA [Suspect]
     Active Substance: INFLIXIMAB-DYYB
     Indication: PULMONARY SARCOIDOSIS
     Dosage: UNK
     Route: 042
     Dates: start: 201710, end: 201710
  2. REMICADE [Suspect]
     Active Substance: INFLIXIMAB
     Indication: PULMONARY SARCOIDOSIS
     Dosage: UNK
     Route: 042
     Dates: start: 201508, end: 201709

REACTIONS (7)
  - Off label use [Unknown]
  - Hepatomegaly [Not Recovered/Not Resolved]
  - Amnesia [Not Recovered/Not Resolved]
  - Hypoacusis [Unknown]
  - Intracranial mass [Not Recovered/Not Resolved]
  - Eye disorder [Unknown]
  - Malaise [Unknown]

NARRATIVE: CASE EVENT DATE: 201710
